FAERS Safety Report 7574201-8 (Version None)
Quarter: 2011Q2

REPORT INFORMATION
  Report Type: 
  Country: None (occurrence: None)
  Receive Date: 20110627
  Receipt Date: 20110112
  Transmission Date: 20111010
  Serious: Yes (Hospitalization, Other)
  Sender: FDA-Public Use
  Company Number: US-BAYER-201037547NA

PATIENT
  Age: 34 Year
  Sex: Female
  Weight: 93.44 kg

DRUGS (8)
  1. YASMIN [Suspect]
     Indication: DYSMENORRHOEA
     Route: 048
     Dates: start: 20070112, end: 20070401
  2. YASMIN [Suspect]
     Indication: PREMENSTRUAL SYNDROME
  3. YAZ [Suspect]
     Indication: ACNE
     Route: 048
     Dates: start: 20070112, end: 20070401
  4. YASMIN [Suspect]
     Indication: ACNE
  5. YAZ [Suspect]
  6. CELEBREX [Concomitant]
     Dosage: 200 MG, UNK
  7. YAZ [Suspect]
     Indication: PREMENSTRUAL SYNDROME
  8. YASMIN [Suspect]

REACTIONS (5)
  - GALLBLADDER INJURY [None]
  - INJURY [None]
  - PAIN [None]
  - EMOTIONAL DISTRESS [None]
  - CHOLECYSTITIS ACUTE [None]
